FAERS Safety Report 20807941 (Version 2)
Quarter: 2022Q2

REPORT INFORMATION
  Report Type: Spontaneous
  Country: US (occurrence: None)
  Receive Date: 20220510
  Receipt Date: 20220622
  Transmission Date: 20220720
  Serious: No
  Sender: FDA-Public Use
  Company Number: 2022A171547

PATIENT
  Age: 19217 Day
  Sex: Male
  Weight: 129.3 kg

DRUGS (1)
  1. BYDUREON BCISE [Suspect]
     Active Substance: EXENATIDE
     Indication: Glycosylated haemoglobin increased
     Route: 058
     Dates: start: 20220425

REACTIONS (2)
  - Back pain [Unknown]
  - Device malfunction [Unknown]

NARRATIVE: CASE EVENT DATE: 20220429
